FAERS Safety Report 19142242 (Version 1)
Quarter: 2021Q2

REPORT INFORMATION
  Report Type: Spontaneous
  Country: US (occurrence: US)
  Receive Date: 20210415
  Receipt Date: 20210415
  Transmission Date: 20210717
  Serious: No
  Sender: FDA-Public Use
  Company Number: US-CHIASMA-2020CHI00022

PATIENT
  Sex: Male

DRUGS (2)
  1. MYCAPSSA [Suspect]
     Active Substance: OCTREOTIDE
     Indication: INSULIN-LIKE GROWTH FACTOR ABNORMAL
     Dosage: 40 MG PER DAY
     Route: 048
     Dates: start: 2020, end: 2020
  2. MYCAPSSA [Suspect]
     Active Substance: OCTREOTIDE
     Indication: HEADACHE
     Dosage: 80 MG PER DAY
     Dates: start: 2020, end: 2020

REACTIONS (1)
  - Drug ineffective [Recovered/Resolved]

NARRATIVE: CASE EVENT DATE: 2020
